FAERS Safety Report 12809873 (Version 1)
Quarter: 2016Q4

REPORT INFORMATION
  Report Type: Spontaneous
  Country: US (occurrence: US)
  Receive Date: 20161004
  Receipt Date: 20161004
  Transmission Date: 20170207
  Serious: Yes (Other)
  Sender: FDA-Public Use
  Company Number: None

PATIENT
  Age: 46 Year
  Sex: Female
  Weight: 60.75 kg

DRUGS (6)
  1. VITAMIN D3 [Concomitant]
     Active Substance: CHOLECALCIFEROL
  2. CETIRIZINE [Concomitant]
     Active Substance: CETIRIZINE HYDROCHLORIDE
  3. BUPROPION. [Suspect]
     Active Substance: BUPROPION
     Indication: DEPRESSION
  4. NASOCORT [Concomitant]
     Active Substance: BUDESONIDE
  5. VENLAFAXINE ER 150MG [Suspect]
     Active Substance: VENLAFAXINE HYDROCHLORIDE
     Indication: DEPRESSION
     Dates: start: 20160502, end: 20160831
  6. FE SULFATE [Concomitant]

REACTIONS (5)
  - Condition aggravated [None]
  - Restless legs syndrome [None]
  - Contusion [None]
  - Anaemia [None]
  - Insomnia [None]

NARRATIVE: CASE EVENT DATE: 20160701
